FAERS Safety Report 7209265-4 (Version None)
Quarter: 2011Q1

REPORT INFORMATION
  Report Type: 
  Country: None (occurrence: None)
  Receive Date: 20110103
  Receipt Date: 20110103
  Transmission Date: 20110831
  Serious: Yes (Other)
  Sender: FDA-Public Use
  Company Number: None

PATIENT
  Age: 43 Year
  Sex: Female
  Weight: 90.7194 kg

DRUGS (1)
  1. GABAPENTIN 300MG CAMDER [Suspect]
     Indication: TRIGEMINAL NEURALGIA
     Dosage: 300MG 2X DAILY PO
     Route: 048
     Dates: start: 20101201, end: 20101215

REACTIONS (2)
  - PAIN [None]
  - PRODUCT SUBSTITUTION ISSUE [None]
